FAERS Safety Report 7953956-4 (Version None)
Quarter: 2011Q4

REPORT INFORMATION
  Report Type: 
  Country: None (occurrence: None)
  Receive Date: 20111202
  Receipt Date: 20111122
  Transmission Date: 20120403
  Serious: Yes (Other)
  Sender: FDA-Public Use
  Company Number: ES-JNJFOC-20111110113

PATIENT
  Sex: Female

DRUGS (2)
  1. REMICADE [Suspect]
     Indication: CROHN'S DISEASE
     Route: 042
     Dates: start: 20100101
  2. REMICADE [Suspect]
     Route: 042
     Dates: start: 20090101

REACTIONS (2)
  - STAPHYLOCOCCAL INFECTION [None]
  - FOLLICULITIS [None]
